FAERS Safety Report 7584531-1 (Version None)
Quarter: 2011Q2

REPORT INFORMATION
  Report Type: 
  Country: None (occurrence: None)
  Receive Date: 20110630
  Receipt Date: 20110623
  Transmission Date: 20111010
  Serious: Yes (Hospitalization, Other)
  Sender: FDA-Public Use
  Company Number: JP-PFIZER INC-2011115280

PATIENT
  Age: 68 Year
  Sex: Male

DRUGS (9)
  1. ASPIRIN [Suspect]
     Indication: MYOCARDIAL INFARCTION
     Dosage: 100 MG, UNK
     Route: 048
  2. LASIX [Suspect]
     Indication: POLYURIA
     Dosage: 40 MG, 2X/DAY
     Route: 048
  3. SIGMART [Suspect]
     Indication: MYOCARDIAL INFARCTION
     Dosage: 10 MG, 2X/DAY
     Route: 048
  4. TRICHLORMETHIAZIDE [Suspect]
     Indication: POLYURIA
     Dosage: 2 MG, 1X/DAY
     Route: 048
  5. PLAVIX [Suspect]
     Indication: POLYURIA
     Dosage: 75 MG, 1X/DAY
     Route: 048
  6. LIPITOR [Suspect]
     Indication: HYPERLIPIDAEMIA
     Dosage: 10 MG, 1X/DAY
     Route: 048
  7. LANSOPRAZOLE [Suspect]
     Indication: REFLUX OESOPHAGITIS
     Dosage: 15 MG, 1X/DAY
     Route: 048
     Dates: start: 20101201, end: 20110407
  8. CARVEDILOL [Suspect]
     Indication: ARRHYTHMIA
     Dosage: 1.25 MG, 2X/DAY
     Route: 048
  9. LANSOPRAZOLE [Suspect]
     Indication: PROPHYLAXIS AGAINST GASTROINTESTINAL ULCER

REACTIONS (2)
  - CARDIAC FAILURE [None]
  - INTERSTITIAL LUNG DISEASE [None]
